FAERS Safety Report 6144602-3 (Version None)
Quarter: 2009Q2

REPORT INFORMATION
  Report Type: 
  Country: None (occurrence: None)
  Receive Date: 20090406
  Receipt Date: 20090319
  Transmission Date: 20091009
  Serious: Yes (Death)
  Sender: FDA-Public Use
  Company Number: MX-PFIZER INC-2009184869

PATIENT

DRUGS (1)
  1. SUTENT [Suspect]
     Indication: RENAL CANCER
     Dosage: 25 MG, 1X/DAY, EVERY 45 DAYS
     Route: 048
     Dates: start: 20090123, end: 20090219

REACTIONS (2)
  - DISEASE PROGRESSION [None]
  - RENAL CANCER [None]
